FAERS Safety Report 6488669-1 (Version None)
Quarter: 2009Q4

REPORT INFORMATION
  Report Type: 
  Country: None (occurrence: None)
  Receive Date: 20091210
  Receipt Date: 20091130
  Transmission Date: 20100525
  Serious: Yes (Other)
  Sender: FDA-Public Use
  Company Number: GB-PFIZER INC-2009303578

PATIENT
  Sex: Male

DRUGS (4)
  1. SUTENT [Suspect]
     Indication: RENAL CELL CARCINOMA
     Dosage: UNK
     Route: 048
  2. PHENYTOIN [Concomitant]
     Indication: EPILEPSY
     Dosage: 300 MG, 1X/DAY
  3. VALPROATE SODIUM [Concomitant]
     Dosage: 500 MG, 1X/DAY
  4. VALPROATE SODIUM [Concomitant]
     Dosage: 600 MG, 1X/DAY

REACTIONS (2)
  - LOSS OF CONSCIOUSNESS [None]
  - PARAESTHESIA [None]
